FAERS Safety Report 23178616 (Version 3)
Quarter: 2024Q1

REPORT INFORMATION
  Report Type: Spontaneous
  Country: CA (occurrence: CA)
  Receive Date: 20231113
  Receipt Date: 20240103
  Transmission Date: 20240410
  Serious: Yes (Other)
  Sender: FDA-Public Use
  Company Number: CA-KARYOPHARM-2023KPT002145

PATIENT

DRUGS (3)
  1. XPOVIO [Suspect]
     Active Substance: SELINEXOR
     Indication: Plasma cell myeloma
     Dosage: 80MG (4 X 20MG) ONCE A WEEK FOR 5 WEEKS (1 CYCLE)
     Route: 048
     Dates: start: 20231011, end: 20231213
  2. DEXAMETHASONE [Concomitant]
     Active Substance: DEXAMETHASONE
     Dosage: UNK
  3. BORTEZOMIB [Concomitant]
     Active Substance: BORTEZOMIB
     Dosage: UNK

REACTIONS (12)
  - Glaucoma [Not Recovered/Not Resolved]
  - Cardiac disorder [Unknown]
  - Ageusia [Unknown]
  - Erythema [Unknown]
  - Contusion [Unknown]
  - Dry mouth [Unknown]
  - Alopecia [Unknown]
  - Gingival bleeding [Unknown]
  - Mouth ulceration [Unknown]
  - Dizziness [Not Recovered/Not Resolved]
  - Nausea [Unknown]
  - Fatigue [Unknown]

NARRATIVE: CASE EVENT DATE: 20230101
